FAERS Safety Report 6599996-1 (Version None)
Quarter: 2010Q1

REPORT INFORMATION
  Report Type: 
  Country: None (occurrence: None)
  Receive Date: 20100217
  Receipt Date: 20100204
  Transmission Date: 20100710
  Serious: No
  Sender: FDA-Public Use
  Company Number: THYR-1000256

PATIENT
  Age: 62 Year
  Sex: Female

DRUGS (2)
  1. THYROGEN [Suspect]
     Indication: SCAN THYROID GLAND
     Dosage: 0.9 MG, QD, INTRAMUSCULAR
     Route: 030
     Dates: start: 20100110, end: 20100111
  2. LEVOTHYROXINE SODIUM [Concomitant]

REACTIONS (4)
  - BODY TEMPERATURE DECREASED [None]
  - HEART RATE DECREASED [None]
  - LOSS OF CONSCIOUSNESS [None]
  - TRANSIENT ISCHAEMIC ATTACK [None]
